FAERS Safety Report 5875498-2 (Version None)
Quarter: 2008Q3

REPORT INFORMATION
  Report Type: 
  Country: None (occurrence: None)
  Receive Date: 20080909
  Receipt Date: 20080903
  Transmission Date: 20090109
  Serious: Yes (Hospitalization)
  Sender: FDA-Public Use
  Company Number: US-KINGPHARMUSA00001-K200801030

PATIENT

DRUGS (5)
  1. CORGARD [Suspect]
     Dosage: 40 MG, BID
     Route: 048
  2. ATACAND [Interacting]
     Dosage: 8 MG, QD
     Route: 048
     Dates: end: 20080514
  3. PLAVIX [Concomitant]
  4. ALDACTONE [Concomitant]
  5. PRAVADUAL [Concomitant]

REACTIONS (10)
  - ASTHENIA [None]
  - DIZZINESS [None]
  - DRUG INTERACTION [None]
  - HYPERHIDROSIS [None]
  - HYPOTENSION [None]
  - LOSS OF CONSCIOUSNESS [None]
  - MALAISE [None]
  - MUSCLE SPASMS [None]
  - MYODESOPSIA [None]
  - PALLOR [None]
